FAERS Safety Report 18174714 (Version 3)
Quarter: 2020Q3

REPORT INFORMATION
  Report Type: Spontaneous
  Country: US (occurrence: US)
  Receive Date: 20200820
  Receipt Date: 20200908
  Transmission Date: 20201103
  Serious: No
  Sender: FDA-Public Use
  Company Number: US-PFIZER INC-2020321522

PATIENT
  Age: 60 Year
  Sex: Female

DRUGS (3)
  1. IBRANCE [Suspect]
     Active Substance: PALBOCICLIB
     Dosage: UNK
     Dates: start: 20200816
  2. IBRANCE [Suspect]
     Active Substance: PALBOCICLIB
     Dosage: 125 MG
     Dates: start: 20200815, end: 20200816
  3. IBRANCE [Suspect]
     Active Substance: PALBOCICLIB
     Dosage: 125 MG
     Dates: start: 20200814

REACTIONS (6)
  - Diarrhoea [Not Recovered/Not Resolved]
  - Constipation [Unknown]
  - Mobility decreased [Unknown]
  - White blood cell count decreased [Unknown]
  - Fatigue [Unknown]
  - Change of bowel habit [Unknown]

NARRATIVE: CASE EVENT DATE: 20200816
